FAERS Safety Report 6616574-6 (Version None)
Quarter: 2010Q1

REPORT INFORMATION
  Report Type: 
  Country: None (occurrence: None)
  Receive Date: 20100305
  Receipt Date: 20100223
  Transmission Date: 20100710
  Serious: Yes (Hospitalization, Other)
  Sender: FDA-Public Use
  Company Number: US-PFIZER INC-2010023995

PATIENT
  Sex: Female

DRUGS (1)
  1. CALAN [Suspect]
     Dosage: 80 MG, UNK

REACTIONS (4)
  - BLINDNESS [None]
  - FEELING ABNORMAL [None]
  - HYPERSENSITIVITY [None]
  - RESPIRATORY FAILURE [None]
